FAERS Safety Report 24809682 (Version 2)
Quarter: 2025Q1

REPORT INFORMATION
  Report Type: Spontaneous
  Country: BG (occurrence: BG)
  Receive Date: 20250106
  Receipt Date: 20250113
  Transmission Date: 20250409
  Serious: Yes (Death)
  Sender: ROCHE
  Company Number: BG-BoehringerIngelheim-2025-BI-000079

PATIENT
  Age: 86 Year
  Sex: Male

DRUGS (2)
  1. ALTEPLASE [Suspect]
     Active Substance: ALTEPLASE
     Indication: Musculoskeletal disorder
     Route: 065
  2. ALTEPLASE [Suspect]
     Active Substance: ALTEPLASE
     Indication: Peripheral ischaemia

REACTIONS (4)
  - Anuria [Fatal]
  - Hypotension [Fatal]
  - Off label use [Unknown]
  - Haemoglobin decreased [Unknown]
